FAERS Safety Report 18781585 (Version 1)
Quarter: 2021Q1

REPORT INFORMATION
  Report Type: Spontaneous
  Country: US (occurrence: US)
  Receive Date: 20210125
  Receipt Date: 20210125
  Transmission Date: 20210419
  Serious: Yes (Death)
  Sender: FDA-Public Use
  Company Number: None

PATIENT
  Age: 55 Year
  Sex: Female

DRUGS (4)
  1. MYCOPHENOLATE 250 MG [Concomitant]
     Active Substance: MYCOPHENOLIC ACID
     Dates: start: 20171017, end: 20210115
  2. VOSEVI [Suspect]
     Active Substance: SOFOSBUVIR\VELPATASVIR\VOXILAPREVIR
     Indication: PRODUCT USED FOR UNKNOWN INDICATION
     Route: 048
     Dates: start: 20201230, end: 20210115
  3. VEMLIDY [Suspect]
     Active Substance: TENOFOVIR ALAFENAMIDE FUMARATE
     Indication: PRODUCT USED FOR UNKNOWN INDICATION
     Route: 048
     Dates: start: 20190813, end: 20210115
  4. TACROLIMUS 1MG [Concomitant]
     Active Substance: TACROLIMUS
     Dates: start: 20151017, end: 20210115

REACTIONS (4)
  - Renal failure [None]
  - Sepsis [None]
  - Acute respiratory failure [None]
  - Hepatic failure [None]

NARRATIVE: CASE EVENT DATE: 20210115
